FAERS Safety Report 10219291 (Version 1)
Quarter: 2014Q2

REPORT INFORMATION
  Report Type: Spontaneous
  Country: US (occurrence: US)
  Receive Date: 20140605
  Receipt Date: 20140605
  Transmission Date: 20141212
  Serious: No
  Sender: FDA-Public Use
  Company Number: US-009507513-1406USA001152

PATIENT
  Sex: 0

DRUGS (15)
  1. SINGULAIR [Suspect]
     Route: 048
  2. CORTISONE ACETATE [Suspect]
     Route: 048
  3. NITRO [Concomitant]
  4. BASICS WATER PILLS [Concomitant]
  5. XALATAN [Concomitant]
  6. POTASSIUM (UNSPECIFIED) [Concomitant]
  7. LANTUS [Concomitant]
  8. ATENOLOL [Concomitant]
  9. LIPITOR [Concomitant]
  10. ALPHAGAN [Concomitant]
  11. NOVOLOG [Concomitant]
  12. RANITIDINE [Concomitant]
  13. TRAMADOL HYDROCHLORIDE [Concomitant]
  14. OXYCONTIN [Concomitant]
  15. HYDROCODONE [Concomitant]

REACTIONS (6)
  - Age-related macular degeneration [Unknown]
  - Cataract [Unknown]
  - Diabetes mellitus [Unknown]
  - Muscle spasms [Unknown]
  - Gastric haemorrhage [Unknown]
  - Epigastric discomfort [Unknown]
